FAERS Safety Report 5624127-1 (Version None)
Quarter: 2008Q1

REPORT INFORMATION
  Report Type: 
  Country: None (occurrence: None)
  Receive Date: 20080213
  Receipt Date: 20080131
  Transmission Date: 20080703
  Serious: Yes (Other)
  Sender: FDA-Public Use
  Company Number: IE-BAYER-200810001BNE

PATIENT
  Age: 40 Year
  Sex: Female

DRUGS (1)
  1. MIRENA [Suspect]
     Indication: DYSFUNCTIONAL UTERINE BLEEDING
     Route: 015
     Dates: start: 20070801

REACTIONS (4)
  - ABNORMAL BEHAVIOUR [None]
  - DEPRESSED MOOD [None]
  - MENOPAUSAL SYMPTOMS [None]
  - MOOD ALTERED [None]
